FAERS Safety Report 12590309 (Version 1)
Quarter: 2016Q3

REPORT INFORMATION
  Report Type: Spontaneous
  Country: US (occurrence: US)
  Receive Date: 20160725
  Receipt Date: 20160725
  Transmission Date: 20161109
  Serious: Yes (Other)
  Sender: FDA-Public Use
  Company Number: US-ALLERGAN-1663604US

PATIENT
  Sex: Female

DRUGS (1)
  1. RESTASIS [Suspect]
     Active Substance: CYCLOSPORINE
     Indication: EYE DISORDER
     Route: 047

REACTIONS (3)
  - Eye injury [Not Recovered/Not Resolved]
  - Gun shot wound [Recovered/Resolved]
  - Road traffic accident [Recovered/Resolved]
